FAERS Safety Report 4586601-9 (Version None)
Quarter: 2005Q1

REPORT INFORMATION
  Report Type: 
  Country: None (occurrence: None)
  Receive Date: 20050218
  Receipt Date: 20040622
  Transmission Date: 20050727
  Serious: No
  Sender: FDA-Public Use
  Company Number: US-BRISTOL-MYERS SQUIBB COMPANY-12624375

PATIENT
  Sex: Female

DRUGS (2)
  1. PARAPLATIN [Suspect]
     Indication: OVARIAN CANCER
     Dosage: THERAPY DATES:  12-NOV TO 18-DEC-2003
     Route: 042
     Dates: start: 20031218, end: 20031218
  2. TAXOL [Suspect]
     Indication: OVARIAN CANCER
     Dosage: THERAPY DATES:  12-NOV TO 18-DEC-2003
     Route: 042
     Dates: start: 20031218, end: 20031218

REACTIONS (1)
  - HYPERSENSITIVITY [None]
